FAERS Safety Report 5924165-5 (Version None)
Quarter: 2008Q4

REPORT INFORMATION
  Report Type: 
  Country: None (occurrence: None)
  Receive Date: 20081015
  Receipt Date: 20081001
  Transmission Date: 20090506
  Serious: Yes (Hospitalization)
  Sender: FDA-Public Use
  Company Number: GXKR2008JP09423

PATIENT
  Age: 76 Year
  Sex: Male

DRUGS (4)
  1. ATENOLOL [Suspect]
     Indication: HYPERTENSION
     Dosage: 50 MG, QD, ORAL
     Route: 048
  2. THALIDOMIDE [Suspect]
     Dosage: 100 MG, QD, ORAL
     Route: 048
  3. HYDROCHLOROTHIAZIDE [Concomitant]
  4. FUROSEMIDE [Concomitant]

REACTIONS (6)
  - BLOOD PRESSURE DECREASED [None]
  - BRADYCARDIA [None]
  - DRUG INTERACTION [None]
  - LEFT VENTRICULAR HYPERTROPHY [None]
  - PANCYTOPENIA [None]
  - SYNCOPE [None]
